FAERS Safety Report 6664659-0 (Version None)
Quarter: 2010Q1

REPORT INFORMATION
  Report Type: 
  Country: None (occurrence: None)
  Receive Date: 20100330
  Receipt Date: 20100319
  Transmission Date: 20100710
  Serious: Yes (Life-Threatening)
  Sender: FDA-Public Use
  Company Number: 528924

PATIENT
  Age: 68 Year
  Sex: Female

DRUGS (2)
  1. OXALIPLATIN [Suspect]
     Indication: GASTROINTESTINAL CARCINOMA
     Dosage: 130 MG
  2. FLUOROURACIL [Suspect]
     Indication: GASTROINTESTINAL CARCINOMA
     Dosage: 660 MG

REACTIONS (2)
  - EJECTION FRACTION DECREASED [None]
  - FALL [None]
